FAERS Safety Report 5224971-9 (Version None)
Quarter: 2007Q1

REPORT INFORMATION
  Report Type: 
  Country: None (occurrence: None)
  Receive Date: 20070131
  Receipt Date: 20070129
  Transmission Date: 20070707
  Serious: Yes (Death)
  Sender: FDA-Public Use
  Company Number: IL-BRISTOL-MYERS SQUIBB COMPANY-13661012

PATIENT
  Age: 80 Year
  Sex: Male

DRUGS (5)
  1. CYCLOPHOSPHAMIDE [Suspect]
     Indication: NON-HODGKIN'S LYMPHOMA
  2. DOXORUBICIN HCL [Suspect]
     Indication: NON-HODGKIN'S LYMPHOMA
  3. RITUXIMAB [Suspect]
     Indication: NON-HODGKIN'S LYMPHOMA
  4. VINCRISTINE [Suspect]
     Indication: NON-HODGKIN'S LYMPHOMA
  5. PREDNISONE [Suspect]
     Indication: NON-HODGKIN'S LYMPHOMA

REACTIONS (1)
  - INTERSTITIAL LUNG DISEASE [None]
